FAERS Safety Report 5815610-4 (Version None)
Quarter: 2008Q3

REPORT INFORMATION
  Report Type: 
  Country: None (occurrence: None)
  Receive Date: 20080716
  Receipt Date: 20080702
  Transmission Date: 20090109
  Serious: Yes (Hospitalization)
  Sender: FDA-Public Use
  Company Number: 236024J08USA

PATIENT
  Age: 58 Year
  Sex: Female
  Weight: 58.9676 kg

DRUGS (9)
  1. REBIF [Suspect]
     Indication: MULTIPLE SCLEROSIS
     Dosage: 44 MCG, 3 IN 1 WEEKS, SUBCUTANEOUS
     Route: 058
     Dates: start: 20020429, end: 20071001
  2. REGLAN (METOCLOPRAMIDE / 00041901/) [Concomitant]
  3. EFFEXOR [Concomitant]
  4. CLARINEX [Concomitant]
  5. CRESTOR [Concomitant]
  6. FEMRING (ESTRADIOL /00045401/) [Concomitant]
  7. PROVIGIL [Concomitant]
  8. NEXIUM [Concomitant]
  9. ZANAFLEX [Concomitant]

REACTIONS (6)
  - FEELING ABNORMAL [None]
  - MALAISE [None]
  - MUSCLE SPASMS [None]
  - SPEECH DISORDER [None]
  - TINNITUS [None]
  - TREMOR [None]
